FAERS Safety Report 6146815-3 (Version None)
Quarter: 2009Q2

REPORT INFORMATION
  Report Type: 
  Country: None (occurrence: None)
  Receive Date: 20090406
  Receipt Date: 20090406
  Transmission Date: 20091009
  Serious: Yes (Other)
  Sender: FDA-Public Use
  Company Number: None

PATIENT
  Sex: Female
  Weight: 54.4316 kg

DRUGS (1)
  1. SIMVASTATIN [Suspect]
     Indication: BLOOD CHOLESTEROL INCREASED
     Dosage: 20 MG 1 PER DAY PO
     Route: 048
     Dates: start: 20081201, end: 20090315

REACTIONS (3)
  - EYELID FUNCTION DISORDER [None]
  - PHOTOPHOBIA [None]
  - VISION BLURRED [None]
